FAERS Safety Report 14312126 (Version 1)
Quarter: 2017Q4

REPORT INFORMATION
  Report Type: Spontaneous
  Country: JP (occurrence: JP)
  Receive Date: 20171221
  Receipt Date: 20171221
  Transmission Date: 20180321
  Serious: Yes (Other)
  Sender: FDA-Public Use
  Company Number: JP-LUPIN PHARMACEUTICALS INC.-2017-07345

PATIENT
  Age: 41 Year
  Sex: Male
  Weight: 56 kg

DRUGS (5)
  1. OLANZAPINE. [Suspect]
     Active Substance: OLANZAPINE
     Dosage: UNK, TAPERED
     Route: 065
  2. ARIPIPRAZOLE. [Concomitant]
     Active Substance: ARIPIPRAZOLE
     Indication: SCHIZOPHRENIA
     Dosage: 30 MG, QD
     Route: 065
  3. OLANZAPINE. [Suspect]
     Active Substance: OLANZAPINE
     Indication: SCHIZOPHRENIA
     Dosage: 20 MG, QD
     Route: 065
  4. QUETIAPINE. [Suspect]
     Active Substance: QUETIAPINE
     Indication: SCHIZOPHRENIA
     Dosage: 400 MG, QD
     Route: 065
  5. QUETIAPINE. [Suspect]
     Active Substance: QUETIAPINE
     Dosage: 600 MG, QD
     Route: 065

REACTIONS (3)
  - Hyperphagia [Recovering/Resolving]
  - Drug ineffective [Unknown]
  - Weight increased [Recovering/Resolving]
